FAERS Safety Report 8135679-4 (Version None)
Quarter: 2012Q1

REPORT INFORMATION
  Report Type: 
  Country: None (occurrence: None)
  Receive Date: 20120214
  Receipt Date: 20120202
  Transmission Date: 20120608
  Serious: Yes (Death, Hospitalization, Other)
  Sender: FDA-Public Use
  Company Number: JP-AMGEN-JPNCT2011052881

PATIENT
  Age: 75 Year
  Sex: Male
  Weight: 42 kg

DRUGS (27)
  1. FLUOROURACIL [Concomitant]
     Route: 040
     Dates: start: 20101104, end: 20110824
  2. FLUOROURACIL [Concomitant]
     Route: 040
     Dates: start: 20110907, end: 20111005
  3. LEVOLEUCOVORIN CALCIUM [Concomitant]
     Route: 041
     Dates: start: 20110907
  4. KYTRIL [Concomitant]
     Route: 042
     Dates: start: 20101104, end: 20110921
  5. FLUOROURACIL [Concomitant]
     Indication: COLORECTAL CANCER
     Route: 040
     Dates: start: 20101104, end: 20110906
  6. FLUOROURACIL [Concomitant]
     Route: 041
     Dates: start: 20101104, end: 20110824
  7. LEVOLEUCOVORIN CALCIUM [Concomitant]
     Route: 041
     Dates: start: 20101104, end: 20110824
  8. FLUOROURACIL [Concomitant]
     Route: 041
     Dates: start: 20101104, end: 20110906
  9. LEVOLEUCOVORIN CALCIUM [Concomitant]
     Indication: COLORECTAL CANCER
     Route: 041
     Dates: start: 20101104, end: 20110906
  10. DECADRON [Concomitant]
     Route: 042
     Dates: start: 20101104, end: 20110921
  11. PANITUMUMAB [Suspect]
     Dosage: 6 MG/KG, Q2WK
     Route: 041
     Dates: start: 20110420, end: 20110420
  12. PANITUMUMAB [Suspect]
     Dosage: 6 MG/KG, Q2WK
     Route: 041
     Dates: start: 20110615, end: 20110615
  13. FLUOROURACIL [Concomitant]
     Route: 041
     Dates: start: 20110907
  14. FLUOROURACIL [Concomitant]
     Route: 041
     Dates: start: 20110907, end: 20111005
  15. KYTRIL [Concomitant]
     Dosage: UNK
     Route: 042
  16. PANITUMUMAB [Suspect]
     Dosage: 6 MG/KG, Q2WK
     Route: 041
     Dates: start: 20110224, end: 20110224
  17. OXALIPLATIN [Concomitant]
     Route: 041
     Dates: start: 20101104, end: 20110824
  18. LEVOLEUCOVORIN CALCIUM [Concomitant]
     Route: 041
     Dates: start: 20110907, end: 20111005
  19. TEMOZOLOMIDE [Concomitant]
     Route: 041
     Dates: start: 20110907, end: 20111005
  20. PANITUMUMAB [Suspect]
     Indication: COLORECTAL CANCER
     Dosage: 6 MG/KG, Q2WK
     Route: 041
     Dates: start: 20101104, end: 20110127
  21. PANITUMUMAB [Suspect]
     Dosage: 6 MG/KG, Q2WK
     Route: 041
     Dates: start: 20110323, end: 20110323
  22. TEMOZOLOMIDE [Concomitant]
     Indication: COLORECTAL CANCER
     Route: 041
     Dates: start: 20110907
  23. DECADRON [Concomitant]
     Dosage: UNK
     Route: 042
  24. PANITUMUMAB [Suspect]
     Dosage: 6 MG/KG, Q2WK
     Route: 041
     Dates: start: 20110824, end: 20110921
  25. FLUOROURACIL [Concomitant]
     Route: 040
     Dates: start: 20110907
  26. PANITUMUMAB [Suspect]
     Dosage: 6 MG/KG, Q2WK
     Route: 041
     Dates: start: 20110518, end: 20110518
  27. OXALIPLATIN [Concomitant]
     Indication: COLORECTAL CANCER
     Route: 041
     Dates: start: 20101104, end: 20110906

REACTIONS (5)
  - COLORECTAL CANCER [None]
  - RASH [None]
  - STOMATITIS [None]
  - INTERSTITIAL LUNG DISEASE [None]
  - DYSPNOEA [None]
